FAERS Safety Report 8915989 (Version 2)
Quarter: 2013Q1

REPORT INFORMATION
  Report Type: Spontaneous
  Country: US (occurrence: US)
  Receive Date: 20121119
  Receipt Date: 20130124
  Transmission Date: 20140127
  Serious: Yes (Death, Hospitalization)
  Sender: FDA-Public Use
  Company Number: US-GLAXOSMITHKLINE-A1001296A

PATIENT
  Age: 73 Year
  Sex: Male

DRUGS (2)
  1. ARIXTRA [Suspect]
     Indication: THROMBOSIS
     Dosage: 7.5MG PER DAY
     Route: 058
     Dates: start: 201203
  2. UNKNOWN [Concomitant]

REACTIONS (10)
  - Lung neoplasm malignant [Fatal]
  - Infarction [Unknown]
  - Nephrocalcinosis [Unknown]
  - Atelectasis [Unknown]
  - Pleural effusion [Unknown]
  - Lymphadenopathy [Unknown]
  - Gynaecomastia [Unknown]
  - Lymphadenopathy [Unknown]
  - Cholelithiasis [Unknown]
  - Diverticulum [Unknown]
